FAERS Safety Report 9892277 (Version 3)
Quarter: 2016Q4

REPORT INFORMATION
  Report Type: Spontaneous
  Country: IE (occurrence: IE)
  Receive Date: 20140212
  Receipt Date: 20161018
  Transmission Date: 20170207
  Serious: Yes (Death)
  Sender: FDA-Public Use
  Company Number: IE-PFIZER INC-2014039410

PATIENT
  Sex: Male

DRUGS (3)
  1. LOSEC [Concomitant]
     Active Substance: OMEPRAZOLE
  2. SUTENT [Suspect]
     Active Substance: SUNITINIB MALATE
     Indication: METASTATIC RENAL CELL CARCINOMA
     Dosage: 50 MG, CYCLIC (4/2)
     Dates: start: 20131226, end: 20140120
  3. TRAMADOL. [Concomitant]
     Active Substance: TRAMADOL

REACTIONS (3)
  - Disease progression [Unknown]
  - Death [Fatal]
  - Metastatic renal cell carcinoma [Unknown]
